FAERS Safety Report 23778613 (Version 1)
Quarter: 2024Q2

REPORT INFORMATION
  Report Type: Spontaneous
  Country: CH (occurrence: CH)
  Receive Date: 20240424
  Receipt Date: 20240424
  Transmission Date: 20240716
  Serious: Yes (Other)
  Sender: FDA-Public Use
  Company Number: CH-shionogi-202403158_FTR_P_1

PATIENT

DRUGS (2)
  1. FETROJA [Suspect]
     Active Substance: CEFIDEROCOL SULFATE TOSYLATE
     Indication: Bacterial infection
     Dosage: UNK
     Route: 065
  2. FOSFOMYCIN SODIUM [Suspect]
     Active Substance: FOSFOMYCIN SODIUM
     Indication: Bacterial infection
     Dosage: UNK
     Route: 065

REACTIONS (3)
  - Pathogen resistance [Recovering/Resolving]
  - Acinetobacter bacteraemia [Recovering/Resolving]
  - Drug resistance [Unknown]
